FAERS Safety Report 4411334-9 (Version None)
Quarter: 2004Q2

REPORT INFORMATION
  Report Type: 
  Country: None (occurrence: None)
  Receive Date: 20040603
  Receipt Date: 20040504
  Transmission Date: 20050107
  Serious: No
  Sender: FDA-Public Use
  Company Number: 04P-163-0259592-00

PATIENT
  Age: 47 Year
  Sex: Female
  Weight: 51.2565 kg

DRUGS (10)
  1. HUMIRA [Suspect]
     Indication: RHEUMATOID ARTHRITIS
     Dosage: 40 MG, 1 IN 2 WK, SUBCUTANEOUS
     Route: 058
     Dates: start: 20040430
  2. IRON [Concomitant]
  3. TOCOPHEROL CONCENTRATE CAP [Concomitant]
  4. CEVIMELINE HYDROCHLORIDE [Concomitant]
  5. RABEPRAZOLE SODIUM [Concomitant]
  6. HYDROXYCHLOROQUINE PHOSPHATE [Concomitant]
  7. GLUCOSAMINE [Concomitant]
  8. LINSEED  OIL [Concomitant]
  9. EVENING PRIMROSE OIL [Concomitant]
  10. HYPERICUM PERFORATUM [Concomitant]

REACTIONS (3)
  - CONDITION AGGRAVATED [None]
  - COUGH [None]
  - NASOPHARYNGITIS [None]
